FAERS Safety Report 6736432-6 (Version None)
Quarter: 2010Q2

REPORT INFORMATION
  Report Type: 
  Country: None (occurrence: None)
  Receive Date: 20100519
  Receipt Date: 20100512
  Transmission Date: 20101027
  Serious: Yes (Other)
  Sender: FDA-Public Use
  Company Number: 2010SP026593

PATIENT
  Sex: Female

DRUGS (1)
  1. NUVARING [Suspect]
     Indication: CONTRACEPTION
     Dates: end: 20090101

REACTIONS (4)
  - BLOOD CORTISOL INCREASED [None]
  - HYPERALDOSTERONISM [None]
  - HYPERTENSION [None]
  - ROAD TRAFFIC ACCIDENT [None]
